FAERS Safety Report 5692032-0 (Version None)
Quarter: 2008Q2

REPORT INFORMATION
  Report Type: 
  Country: None (occurrence: None)
  Receive Date: 20080402
  Receipt Date: 20080327
  Transmission Date: 20081010
  Serious: Yes (Hospitalization)
  Sender: FDA-Public Use
  Company Number: CH-MERCK-0803CHE00024

PATIENT
  Age: 58 Year
  Sex: Female
  Weight: 119 kg

DRUGS (4)
  1. JANUVIA [Suspect]
     Indication: DIABETES MELLITUS
     Route: 048
     Dates: start: 20071101
  2. METFORMIN [Concomitant]
     Indication: DIABETES MELLITUS
     Route: 048
     Dates: end: 20080304
  3. METFORMIN [Concomitant]
     Route: 048
     Dates: start: 20080305
  4. [COMPOSITION UNSPECIFIED] [Concomitant]
     Indication: MENTAL DISORDER
     Route: 065

REACTIONS (1)
  - PARANOIA [None]
